FAERS Safety Report 5106752-X (Version None)
Quarter: 2006Q3

REPORT INFORMATION
  Report Type: 
  Country: None (occurrence: None)
  Receive Date: 20060731
  Receipt Date: 20050825
  Transmission Date: 20061208
  Serious: Yes (Other)
  Sender: FDA-Public Use
  Company Number: US-JNJFOC-20050806531

PATIENT
  Age: 44 Year
  Sex: Male

DRUGS (2)
  1. RISPERDAL [Suspect]
     Indication: SCHIZOPHRENIA, PARANOID TYPE
     Dosage: 2 MG, ORAL
     Route: 048
  2. PROPYLTHIOURACIL [Concomitant]

REACTIONS (1)
  - DIABETES MELLITUS NON-INSULIN-DEPENDENT [None]
